FAERS Safety Report 16648673 (Version 1)
Quarter: 2019Q3

REPORT INFORMATION
  Report Type: Spontaneous
  Country: US (occurrence: US)
  Receive Date: 20190730
  Receipt Date: 20190730
  Transmission Date: 20191004
  Serious: No
  Sender: FDA-Public Use
  Company Number: US-IBSA PHARMA-TIR-2019-0340

PATIENT
  Age: 52 Year
  Sex: Female

DRUGS (2)
  1. TIROSINT [Suspect]
     Active Substance: LEVOTHYROXINE SODIUM
     Indication: BASEDOW^S DISEASE
     Dosage: 137MCG DAILY
     Route: 048
     Dates: end: 2019
  2. TIROSINT [Suspect]
     Active Substance: LEVOTHYROXINE SODIUM
     Indication: BASEDOW^S DISEASE
     Route: 048

REACTIONS (7)
  - Diarrhoea [Recovered/Resolved]
  - Inflammation [Recovering/Resolving]
  - Malaise [Unknown]
  - Product blister packaging issue [Not Recovered/Not Resolved]
  - Drug level below therapeutic [Unknown]
  - Tri-iodothyronine abnormal [Unknown]
  - Oedema peripheral [Recovering/Resolving]

NARRATIVE: CASE EVENT DATE: 201903
